FAERS Safety Report 17188002 (Version 1)
Quarter: 2019Q4

REPORT INFORMATION
  Report Type: Spontaneous
  Country: GB (occurrence: GB)
  Receive Date: 20191221
  Receipt Date: 20191221
  Transmission Date: 20200122
  Serious: Yes (Other)
  Sender: FDA-Public Use
  Company Number: GB-ACCORD-166199

PATIENT
  Age: 27 Year
  Sex: Female

DRUGS (1)
  1. QUETIAPINE. [Suspect]
     Active Substance: QUETIAPINE
     Indication: PRODUCT USED FOR UNKNOWN INDICATION
     Dosage: 4 DAILY FOR 7 DAYS THEN REDUCE ONE TABLET EVERY WEEK TILL ZERO.
     Route: 048

REACTIONS (3)
  - Product dispensing error [Unknown]
  - Hallucination, auditory [Unknown]
  - Accidental overdose [Unknown]
